FAERS Safety Report 9015747 (Version 1)
Quarter: 2013Q1

REPORT INFORMATION
  Report Type: Spontaneous
  Country: CH (occurrence: None)
  Receive Date: 20130102
  Receipt Date: 20130102
  Transmission Date: 20140127
  Serious: Yes (Hospitalization)
  Sender: FDA-Public Use
  Company Number: 20120776

PATIENT
  Age: 21 Year
  Sex: Female

DRUGS (1)
  1. VENOFER [Suspect]
     Indication: PRODUCT USED FOR UNKNOWN INDICATION
     Route: 042
     Dates: start: 20120817, end: 20120818

REACTIONS (3)
  - Thrombophlebitis superficial [None]
  - Puncture site reaction [None]
  - Pain in extremity [None]
